FAERS Safety Report 5452003-6 (Version None)
Quarter: 2007Q3

REPORT INFORMATION
  Report Type: 
  Country: None (occurrence: None)
  Receive Date: 20070912
  Receipt Date: 20070903
  Transmission Date: 20080115
  Serious: Yes (Congenital Anomaly, Other)
  Sender: FDA-Public Use
  Company Number: L07-ITA-03747-02

PATIENT
  Age: 37 Week
  Weight: 0.028 kg

DRUGS (3)
  1. CARBAMAZEPINE [Suspect]
     Indication: EPILEPSY
  2. PHENOBARBITAL TAB [Suspect]
     Indication: EPILEPSY
  3. FOLIC ACID [Concomitant]

REACTIONS (3)
  - CONGENITAL CYSTIC KIDNEY DISEASE [None]
  - DRUG EXPOSURE DURING PREGNANCY [None]
  - HYPERTELORISM OF ORBIT [None]
